FAERS Safety Report 15723160 (Version 2)
Quarter: 2019Q2

REPORT INFORMATION
  Report Type: Spontaneous
  Country: JP (occurrence: JP)
  Receive Date: 20181214
  Receipt Date: 20190523
  Transmission Date: 20190711
  Serious: Yes (Death, Other)
  Sender: FDA-Public Use
  Company Number: JP-PFIZER INC-2018507045

PATIENT
  Age: 83 Year
  Sex: Female

DRUGS (11)
  1. ENSURE [NUTRIENTS NOS] [Concomitant]
     Dosage: 250 ML, 1X/DAY
     Route: 048
  2. MARZULENE COMBINATION [Concomitant]
     Dosage: UNK
  3. MAGMITT [Concomitant]
     Active Substance: MAGNESIUM OXIDE
     Dosage: 330 MG, 2X/DAY
     Route: 048
  4. SENNOSIDE A+B [Concomitant]
     Active Substance: SENNOSIDES A AND B
     Dosage: UNK UNK, 1X/DAY
     Route: 048
  5. TRAMCET [Suspect]
     Active Substance: ACETAMINOPHEN\TRAMADOL
     Dosage: 4 DF, DAILY
     Route: 048
     Dates: end: 20181129
  6. TERIBONE [Concomitant]
     Active Substance: TERIPARATIDE ACETATE
     Dosage: UNK
     Route: 058
  7. MOHRUS [Concomitant]
     Active Substance: KETOPROFEN
     Dosage: UNK UNK, 1X/DAY
     Route: 003
  8. RANITIDINE. [Concomitant]
     Active Substance: RANITIDINE
     Dosage: 75 MG, 2X/DAY
     Route: 048
  9. LYRICA [Suspect]
     Active Substance: PREGABALIN
     Dosage: 225 MG, DAILY
     Route: 048
     Dates: start: 20181013, end: 20181129
  10. GLORIAMIN [LEVOGLUTAMIDE;SODIUM GUALENATE] [Concomitant]
     Dosage: UNK UNK, 3X/DAY
     Route: 048
  11. MAGMITT [Concomitant]
     Active Substance: MAGNESIUM OXIDE
     Dosage: 660 MG, 2X/DAY
     Route: 048

REACTIONS (2)
  - Death [Fatal]
  - Hepatic function abnormal [Unknown]

NARRATIVE: CASE EVENT DATE: 20181113
